FAERS Safety Report 8771006 (Version 2)
Quarter: 2012Q4

REPORT INFORMATION
  Report Type: Report from Study
  Country: US (occurrence: US)
  Receive Date: 20120906
  Receipt Date: 20120914
  Transmission Date: 20130627
  Serious: Yes (Hospitalization)
  Sender: FDA-Public Use
  Company Number: US-ACTELION-A-NJ2012-71041

PATIENT
  Age: 80 Year
  Sex: Male

DRUGS (5)
  1. VENTAVIS [Suspect]
     Indication: PULMONARY ARTERIAL HYPERTENSION
     Dosage: UNK
     Route: 055
  2. COUMADIN [Concomitant]
  3. ADCIRCA [Concomitant]
  4. K-DUR [Concomitant]
  5. LASIX [Concomitant]

REACTIONS (1)
  - Hypokalaemia [Unknown]
